FAERS Safety Report 20585905 (Version 1)
Quarter: 2022Q1

REPORT INFORMATION
  Report Type: Spontaneous
  Country: US (occurrence: US)
  Receive Date: 20220312
  Receipt Date: 20220312
  Transmission Date: 20220424
  Serious: Yes (Death)
  Sender: FDA-Public Use
  Company Number: US-NOVARTISPH-NVSC2022US057991

PATIENT
  Age: 51 Year
  Sex: Female

DRUGS (1)
  1. HYCAMTIN [Suspect]
     Active Substance: TOPOTECAN HYDROCHLORIDE
     Indication: Lung carcinoma cell type unspecified stage 0
     Dosage: 5 MG (TAKE 5 CAPSULES BY MOUTH ON DAYS 1-5 OF EVERY 21 DAY CYCLE)
     Route: 048
     Dates: start: 20210805

REACTIONS (1)
  - Death [Fatal]

NARRATIVE: CASE EVENT DATE: 20220305
